FAERS Safety Report 8271785-1 (Version None)
Quarter: 2012Q2

REPORT INFORMATION
  Report Type: 
  Country: None (occurrence: None)
  Receive Date: 20120410
  Receipt Date: 20120403
  Transmission Date: 20120825
  Serious: Yes (Other)
  Sender: FDA-Public Use
  Company Number: US-PFIZER INC-2012085250

PATIENT
  Sex: Female

DRUGS (10)
  1. FISH OIL [Concomitant]
     Dosage: UNK
  2. SULFASALAZINE [Concomitant]
     Dosage: UNK
  3. METHYLPREDNISOLONE ACETATE [Concomitant]
     Dosage: UNK
  4. ERGOCALCIFEROL [Concomitant]
     Dosage: UNK
  5. LEVOTHYROXINE [Concomitant]
     Dosage: UNK
  6. HUMIRA [Suspect]
     Indication: RHEUMATOID ARTHRITIS
     Dosage: 40 MG/ 0.8 ML, 1 IN 2 WEEKS
     Dates: start: 20090101
  7. ATORVASTATIN CALCIUM [Suspect]
     Dosage: UNK
     Dates: end: 20120301
  8. LIPITOR [Suspect]
     Dosage: UNK
  9. ESCITALOPRAM OXALATE [Concomitant]
     Dosage: UNK
  10. LANSOPRAZOLE [Concomitant]
     Dosage: UNK

REACTIONS (4)
  - FALL [None]
  - PAIN IN EXTREMITY [None]
  - MUSCULAR WEAKNESS [None]
  - NECK PAIN [None]
